FAERS Safety Report 6679527-8 (Version None)
Quarter: 2010Q2

REPORT INFORMATION
  Report Type: 
  Country: None (occurrence: None)
  Receive Date: 20100413
  Receipt Date: 20100331
  Transmission Date: 20101027
  Serious: Yes (Hospitalization)
  Sender: FDA-Public Use
  Company Number: PHHY2010US20570

PATIENT
  Sex: Male

DRUGS (2)
  1. GLEEVEC [Suspect]
     Indication: MALIGNANT SOFT TISSUE NEOPLASM
     Dosage: 400 MG, QD
     Route: 048
  2. TPN ELECTROLYTES IN PLASTIC CONTAINER [Concomitant]

REACTIONS (3)
  - DEHYDRATION [None]
  - MALNUTRITION [None]
  - PYREXIA [None]
